FAERS Safety Report 4552468-8 (Version None)
Quarter: 2005Q1

REPORT INFORMATION
  Report Type: 
  Country: None (occurrence: None)
  Receive Date: 20050114
  Receipt Date: 20041011
  Transmission Date: 20050727
  Serious: Yes (Other)
  Sender: FDA-Public Use
  Company Number: US-BRISTOL-MYERS SQUIBB COMPANY-12728747

PATIENT
  Age: 54 Year
  Sex: Female
  Weight: 68 kg

DRUGS (7)
  1. PLATINOL [Suspect]
     Indication: OVARIAN CANCER
     Route: 042
     Dates: start: 20041011, end: 20041011
  2. BENADRYL [Concomitant]
     Indication: PREMEDICATION
     Route: 042
     Dates: start: 20041011
  3. SOLU-CORTEF [Concomitant]
     Indication: PREMEDICATION
     Route: 042
     Dates: start: 20041011
  4. DECADRON [Concomitant]
     Indication: PREMEDICATION
     Route: 042
     Dates: start: 20041011
  5. MANNITOL [Concomitant]
     Indication: PREMEDICATION
     Route: 042
     Dates: start: 20041011
  6. ZOLOFT [Concomitant]
  7. XANAX [Concomitant]

REACTIONS (4)
  - BLOOD PRESSURE DECREASED [None]
  - CHILLS [None]
  - DYSPNOEA [None]
  - ERYTHEMA [None]
